FAERS Safety Report 10642618 (Version 1)
Quarter: 2014Q4

REPORT INFORMATION
  Report Type: Spontaneous
  Country: None (occurrence: None)
  Receive Date: 20141208
  Receipt Date: 20141208
  Transmission Date: 20150529
  Serious: Yes (Other)
  Sender: FDA-Public Use
  Company Number: None

PATIENT
  Age: 54 Year
  Sex: Female
  Weight: 50.8 kg

DRUGS (2)
  1. BENADRYL [Suspect]
     Active Substance: DIPHENHYDRAMINE HYDROCHLORIDE
     Indication: DRUG ERUPTION
     Dosage: INTO A VEIN?ONCE
     Route: 042
  2. PERCOCET [Suspect]
     Active Substance: ACETAMINOPHEN\OXYCODONE HYDROCHLORIDE
     Indication: PROCEDURAL PAIN
     Dosage: 2 PILLS?TAKEN BY MOUTH?ONCE
     Route: 048

REACTIONS (7)
  - Hypopnoea [None]
  - Dyspnoea [None]
  - Shock [None]
  - Respiratory rate increased [None]
  - Asthenia [None]
  - Rash generalised [None]
  - Drug hypersensitivity [None]

NARRATIVE: CASE EVENT DATE: 20141024
